FAERS Safety Report 8395696-6 (Version None)
Quarter: 2012Q2

REPORT INFORMATION
  Report Type: 
  Country: None (occurrence: None)
  Receive Date: 20120530
  Receipt Date: 20120307
  Transmission Date: 20120825
  Serious: No
  Sender: FDA-Public Use
  Company Number: US-GLAXOSMITHKLINE-A0969541A

PATIENT
  Sex: Male

DRUGS (3)
  1. UNSPECIFIED MEDICATION [Suspect]
     Indication: PRODUCT USED FOR UNKNOWN INDICATION
     Route: 065
  2. INHALER [Concomitant]
  3. VENTOLIN [Suspect]
     Indication: DYSPNOEA
     Dosage: 8PUFF PER DAY
     Route: 055

REACTIONS (1)
  - NERVOUS SYSTEM DISORDER [None]
